FAERS Safety Report 23397677 (Version 2)
Quarter: 2024Q1

REPORT INFORMATION
  Report Type: Spontaneous
  Country: US (occurrence: US)
  Receive Date: 20240112
  Receipt Date: 20240205
  Transmission Date: 20240409
  Serious: No
  Sender: FDA-Public Use
  Company Number: US-PFIZER INC-202400005378

PATIENT
  Age: 70 Year
  Sex: Male

DRUGS (1)
  1. BENEFIX [Suspect]
     Active Substance: COAGULATION FACTOR IX RECOMBINANT HUMAN\ISOPROPYL ALCOHOL
     Indication: Haemorrhage
     Dosage: 2,000-4,000 UNITS INTO A VENOUS CATHETER ONE TIME EACH DAY IF NEEDED
     Route: 042

REACTIONS (2)
  - Arthropathy [Unknown]
  - Product prescribing error [Unknown]
